FAERS Safety Report 12473484 (Version 1)
Quarter: 2016Q2

REPORT INFORMATION
  Report Type: Spontaneous
  Country: PL (occurrence: PL)
  Receive Date: 20160616
  Receipt Date: 20160616
  Transmission Date: 20160815
  Serious: Yes (Hospitalization)
  Sender: FDA-Public Use
  Company Number: PL-MYLANLABS-2016M1024788

PATIENT

DRUGS (3)
  1. KETOPROFEN. [Suspect]
     Active Substance: KETOPROFEN
     Indication: ANALGESIC THERAPY
     Route: 065
  2. CEFUROXIME. [Suspect]
     Active Substance: CEFUROXIME
     Indication: PRODUCT USED FOR UNKNOWN INDICATION
     Route: 042
  3. LIDOCAINE. [Concomitant]
     Active Substance: LIDOCAINE
     Indication: LOCAL ANAESTHESIA
     Route: 065

REACTIONS (4)
  - Cerebrovascular accident [Recovered/Resolved]
  - Anaphylactic reaction [Recovered/Resolved]
  - Cardiac arrest [Recovered/Resolved]
  - Quadriplegia [Recovered/Resolved]

NARRATIVE: CASE EVENT DATE: 200901
